FAERS Safety Report 8376020-1 (Version None)
Quarter: 2012Q2

REPORT INFORMATION
  Report Type: 
  Country: None (occurrence: None)
  Receive Date: 20120518
  Receipt Date: 20120504
  Transmission Date: 20120825
  Serious: Yes (Hospitalization)
  Sender: FDA-Public Use
  Company Number: NGX_01085_2012

PATIENT
  Sex: Female
  Weight: 67.586 kg

DRUGS (5)
  1. TOPAMAX [Concomitant]
  2. HYDROCODONE (UNKNOWN) [Concomitant]
  3. QUTENZA [Suspect]
     Indication: POST HERPETIC NEURALGIA
     Dosage: (1 DF, [PATCH, APPLIED TO RIGHT SHOULDER/NECK AREA] TOPICAL)
     Route: 061
     Dates: start: 20120430, end: 20120430
  4. CYMBALTA [Concomitant]
  5. NEURONTIN (UNKNOWN) [Concomitant]

REACTIONS (5)
  - POST HERPETIC NEURALGIA [None]
  - CONDITION AGGRAVATED [None]
  - PAIN [None]
  - APPLICATION SITE VESICLES [None]
  - FEELING HOT [None]
